FAERS Safety Report 7498655-0 (Version None)
Quarter: 2011Q2

REPORT INFORMATION
  Report Type: 
  Country: None (occurrence: None)
  Receive Date: 20110524
  Receipt Date: 20110517
  Transmission Date: 20111010
  Serious: Yes (Hospitalization)
  Sender: FDA-Public Use
  Company Number: GR-ASTELLAS-2011EU002940

PATIENT
  Age: 42 Year
  Sex: Female
  Weight: 80 kg

DRUGS (6)
  1. NORFLOXACIN [Concomitant]
     Indication: CONJUNCTIVITIS
     Dosage: 0.3 %, OTHER
     Route: 050
     Dates: start: 20110430, end: 20110510
  2. ANTIBIOTICS [Concomitant]
     Indication: BRONCHITIS
     Dosage: 500 MG, UID/QD
     Route: 048
     Dates: start: 20110430, end: 20110510
  3. DECONGESTANT [Concomitant]
     Indication: BRONCHITIS
     Dosage: UNK
     Route: 048
     Dates: start: 20110430, end: 20110510
  4. VESICARE [Suspect]
     Indication: STRESS URINARY INCONTINENCE
     Dosage: 5 MG, UID/QD
     Route: 048
     Dates: start: 20110517
  5. LEVOTHYROXINE SODIUM [Concomitant]
     Indication: HYPERTHYROIDISM
     Dosage: 0.1 MG, OTHER
     Route: 048
  6. ANTIBIOTICS [Concomitant]
     Indication: URINARY TRACT INFECTION
     Dosage: UNK
     Route: 048

REACTIONS (7)
  - PARALYSIS [None]
  - CHILLS [None]
  - MUSCULAR WEAKNESS [None]
  - RETCHING [None]
  - ASTHENIA [None]
  - TREMOR [None]
  - PANIC DISORDER [None]
